FAERS Safety Report 24548077 (Version 1)
Quarter: 2024Q4

REPORT INFORMATION
  Report Type: Spontaneous
  Country: DE (occurrence: DE)
  Receive Date: 20241025
  Receipt Date: 20241025
  Transmission Date: 20250114
  Serious: No
  Sender: ALKEM
  Company Number: DE-ALKEM LABORATORIES LIMITED-DE-ALKEM-2024-17485

PATIENT
  Age: 32 Year
  Sex: Male

DRUGS (9)
  1. CLOBAZAM [Interacting]
     Active Substance: CLOBAZAM
     Indication: Partial seizures
     Dosage: 15 MILLIGRAM, QD
     Route: 065
  2. CLOBAZAM [Interacting]
     Active Substance: CLOBAZAM
     Indication: Infarction
     Dosage: 10 MILLIGRAM, QD
     Route: 065
  3. CLOBAZAM [Interacting]
     Active Substance: CLOBAZAM
     Dosage: UNK (DOSE REDUCTION)
     Route: 065
  4. CENOBAMATE [Interacting]
     Active Substance: CENOBAMATE
     Indication: Partial seizures
     Dosage: 150 MILLIGRAM
     Route: 065
  5. CENOBAMATE [Interacting]
     Active Substance: CENOBAMATE
     Indication: Infarction
  6. VALPROATE [Concomitant]
     Active Substance: VALPROIC ACID
     Indication: Partial seizures
     Dosage: UNK
     Route: 065
  7. VALPROATE [Concomitant]
     Active Substance: VALPROIC ACID
     Indication: Infarction
  8. LAMOTRIGINE [Concomitant]
     Active Substance: LAMOTRIGINE
     Indication: Partial seizures
     Dosage: UNK
     Route: 065
  9. LAMOTRIGINE [Concomitant]
     Active Substance: LAMOTRIGINE
     Indication: Infarction

REACTIONS (3)
  - Drug level increased [Unknown]
  - Drug interaction [Unknown]
  - Fatigue [Recovering/Resolving]
